FAERS Safety Report 12893703 (Version 1)
Quarter: 2016Q4

REPORT INFORMATION
  Report Type: Report from Study
  Country: US (occurrence: US)
  Receive Date: 20161028
  Receipt Date: 20161028
  Transmission Date: 20170207
  Serious: Yes (Hospitalization, Other)
  Sender: FDA-Public Use
  Company Number: US-SA-2015SA044789

PATIENT
  Age: 53 Year
  Sex: Female

DRUGS (3)
  1. LEMTRADA [Suspect]
     Active Substance: ALEMTUZUMAB
     Indication: MULTIPLE SCLEROSIS
     Route: 041
     Dates: start: 20150323, end: 20150327
  2. LEMTRADA [Suspect]
     Active Substance: ALEMTUZUMAB
     Indication: MULTIPLE SCLEROSIS
     Route: 041
     Dates: start: 20160406, end: 20160408
  3. BACLOFEN. [Suspect]
     Active Substance: BACLOFEN
     Route: 065

REACTIONS (35)
  - Balance disorder [Recovering/Resolving]
  - Visual impairment [Unknown]
  - Panic attack [Unknown]
  - Ill-defined disorder [Unknown]
  - Diarrhoea [Unknown]
  - Fall [Unknown]
  - Condition aggravated [Not Recovered/Not Resolved]
  - Weight decreased [Unknown]
  - Intervertebral disc protrusion [Unknown]
  - Feeling abnormal [Not Recovered/Not Resolved]
  - Fatigue [Recovering/Resolving]
  - Increased appetite [Not Recovered/Not Resolved]
  - Multiple sclerosis relapse [Unknown]
  - Urine odour abnormal [Recovering/Resolving]
  - Drug ineffective [Unknown]
  - Gingival pain [Unknown]
  - Tooth disorder [Unknown]
  - Sensory loss [Unknown]
  - Cerebrovascular accident [Recovered/Resolved]
  - Oral pain [Unknown]
  - Scratch [Unknown]
  - Dysstasia [Unknown]
  - Gingival bleeding [Unknown]
  - Burning sensation [Unknown]
  - Contusion [Unknown]
  - Gait disturbance [Not Recovered/Not Resolved]
  - Skin ulcer [Unknown]
  - Pain in extremity [Unknown]
  - Scab [Unknown]
  - Vein disorder [Unknown]
  - Poor venous access [Unknown]
  - Pyrexia [Unknown]
  - Hypoaesthesia [Not Recovered/Not Resolved]
  - Nasopharyngitis [Not Recovered/Not Resolved]
  - Pain [Not Recovered/Not Resolved]

NARRATIVE: CASE EVENT DATE: 2015
